FAERS Safety Report 18284925 (Version 1)
Quarter: 2020Q3

REPORT INFORMATION
  Report Type: Report from Study
  Country: CA (occurrence: CA)
  Receive Date: 20200918
  Receipt Date: 20200918
  Transmission Date: 20201103
  Serious: Yes (Other)
  Sender: FDA-Public Use
  Company Number: CA-JNJFOC-20200915623

PATIENT
  Age: 23 Year
  Sex: Female
  Weight: 77.18 kg

DRUGS (1)
  1. STELARA [Suspect]
     Active Substance: USTEKINUMAB
     Indication: CROHN^S DISEASE
     Route: 058
     Dates: start: 20180124

REACTIONS (2)
  - Head injury [Unknown]
  - Concussion [Unknown]

NARRATIVE: CASE EVENT DATE: 20200811
